FAERS Safety Report 5304138-6 (Version None)
Quarter: 2007Q2

REPORT INFORMATION
  Report Type: 
  Country: None (occurrence: None)
  Receive Date: 20070423
  Receipt Date: 20070410
  Transmission Date: 20071010
  Serious: Yes (Other)
  Sender: FDA-Public Use
  Company Number: PHNU2007DE00738

PATIENT
  Age: 35 Year
  Sex: Male
  Weight: 66 kg

DRUGS (1)
  1. TEGRETOL [Suspect]
     Indication: BIPOLAR DISORDER
     Dosage: 600 MG/DAY
     Route: 048
     Dates: start: 20021001

REACTIONS (9)
  - BLOOD CHOLESTEROL INCREASED [None]
  - BLOOD IRON INCREASED [None]
  - GAMMA-GLUTAMYLTRANSFERASE INCREASED [None]
  - HAEMATOCRIT DECREASED [None]
  - MEAN CELL HAEMOGLOBIN CONCENTRATION INCREASED [None]
  - PHLEBOTOMY [None]
  - RED BLOOD CELL COUNT DECREASED [None]
  - SERUM FERRITIN INCREASED [None]
  - WHITE BLOOD CELL COUNT INCREASED [None]
